FAERS Safety Report 15852420 (Version 1)
Quarter: 2019Q1

REPORT INFORMATION
  Report Type: Report from Study
  Country: US (occurrence: US)
  Receive Date: 20190122
  Receipt Date: 20190122
  Transmission Date: 20190417
  Serious: Yes (Other)
  Sender: FDA-Public Use
  Company Number: PHEH2019US003008

PATIENT
  Age: 6 Month
  Sex: Male

DRUGS (1)
  1. ENTRESTO [Suspect]
     Active Substance: SACUBITRIL\VALSARTAN
     Indication: FOETAL EXPOSURE DURING PREGNANCY
     Dosage: FOETAL EXPOSURE VIA FATHER: NOT REPORTED
     Route: 064

REACTIONS (2)
  - Cardiomyopathy [Unknown]
  - Foetal exposure during pregnancy [Unknown]
